FAERS Safety Report 10023723 (Version 2)
Quarter: 2014Q1

REPORT INFORMATION
  Report Type: Spontaneous
  Country: US (occurrence: US)
  Receive Date: 20140320
  Receipt Date: 20140326
  Transmission Date: 20141002
  Serious: Yes (Hospitalization, Other)
  Sender: FDA-Public Use
  Company Number: US-AMGEN-USASP2014019674

PATIENT
  Age: 57 Year
  Sex: Female

DRUGS (2)
  1. ENBREL [Suspect]
     Indication: PSORIATIC ARTHROPATHY
     Dosage: 50 MG, QWK
     Route: 065
     Dates: start: 20130329, end: 20140225
  2. ENBREL [Suspect]
     Indication: PSORIASIS

REACTIONS (5)
  - Sleep apnoea syndrome [Not Recovered/Not Resolved]
  - Bunion [Recovered/Resolved]
  - Pain in extremity [Recovered/Resolved]
  - Foot deformity [Recovered/Resolved]
  - Psoriasis [Not Recovered/Not Resolved]
